FAERS Safety Report 11174401 (Version 2)
Quarter: 2015Q3

REPORT INFORMATION
  Report Type: Spontaneous
  Country: JP (occurrence: JP)
  Receive Date: 20150609
  Receipt Date: 20150713
  Transmission Date: 20151125
  Serious: Yes (Other)
  Sender: FDA-Public Use
  Company Number: JP-JNJFOC-20150603071

PATIENT
  Age: 9 Decade
  Sex: Male

DRUGS (3)
  1. PREDONINE [Concomitant]
     Active Substance: PREDNISOLONE\PREDNISOLONE ACETATE\PREDNISOLONE SODIUM SUCCINATE
     Route: 065
  2. RHEUMATREX [Concomitant]
     Active Substance: METHOTREXATE SODIUM
     Route: 065
  3. REMICADE [Suspect]
     Active Substance: INFLIXIMAB
     Indication: RHEUMATOID ARTHRITIS
     Route: 042

REACTIONS (5)
  - Malaise [Recovered/Resolved]
  - Internal haemorrhage [Recovered/Resolved]
  - Infusion related reaction [Recovered/Resolved]
  - Head discomfort [Recovered/Resolved]
  - Chills [Recovered/Resolved]
